FAERS Safety Report 7776584-2 (Version None)
Quarter: 2011Q3

REPORT INFORMATION
  Report Type: 
  Country: None (occurrence: None)
  Receive Date: 20110922
  Receipt Date: 20110922
  Transmission Date: 20111222
  Serious: No
  Sender: FDA-Public Use
  Company Number: None

PATIENT
  Sex: Male

DRUGS (1)
  1. LATANOPROST [Suspect]
     Dosage: ONE DROP IN EACH EYE DAILY

REACTIONS (2)
  - PRODUCT PACKAGING QUANTITY ISSUE [None]
  - PRODUCT SUBSTITUTION ISSUE [None]
